FAERS Safety Report 15849628 (Version 1)
Quarter: 2019Q1

REPORT INFORMATION
  Report Type: Spontaneous
  Country: DE (occurrence: DE)
  Receive Date: 20190121
  Receipt Date: 20190121
  Transmission Date: 20190417
  Serious: Yes (Other)
  Sender: FDA-Public Use
  Company Number: PHHY2019DE009754

PATIENT
  Age: 32 Year
  Sex: Female
  Weight: 85 kg

DRUGS (6)
  1. PRESINOL [Suspect]
     Active Substance: METHYLDOPA
     Dosage: 500 MG, QD
     Route: 048
     Dates: start: 20180530
  2. PRESINOL [Suspect]
     Active Substance: METHYLDOPA
     Indication: PRE-ECLAMPSIA
     Dosage: 500 MG, QD
     Route: 048
     Dates: start: 20180517, end: 20180530
  3. ESCITALOPRAM [Suspect]
     Active Substance: ESCITALOPRAM OXALATE
     Indication: ANXIETY DISORDER
     Dosage: 20 MG, QD
     Route: 048
     Dates: start: 20170924, end: 20180530
  4. ESCITALOPRAM [Suspect]
     Active Substance: ESCITALOPRAM OXALATE
     Dosage: 20 MG, QD
     Route: 048
     Dates: start: 20180530
  5. QUETIAPINE. [Suspect]
     Active Substance: QUETIAPINE
     Indication: DEPRESSION
     Dosage: 25 MG, QD
     Route: 048
     Dates: start: 20170924, end: 20180530
  6. QUETIAPINE. [Suspect]
     Active Substance: QUETIAPINE
     Dosage: 25 MG, QD
     Route: 048
     Dates: start: 20180530

REACTIONS (1)
  - Stillbirth [Recovered/Resolved]
